FAERS Safety Report 15323625 (Version 1)
Quarter: 2018Q3

REPORT INFORMATION
  Report Type: Spontaneous
  Country: GB (occurrence: GB)
  Receive Date: 20180827
  Receipt Date: 20180827
  Transmission Date: 20181010
  Serious: Yes (Death, Hospitalization)
  Sender: FDA-Public Use
  Company Number: PHHY2018GB055784

PATIENT
  Age: 39 Year

DRUGS (2)
  1. AMOXICILLIN. [Suspect]
     Active Substance: AMOXICILLIN
     Indication: PRODUCT USED FOR UNKNOWN INDICATION
     Route: 065
  2. METHOTREXATE. [Suspect]
     Active Substance: METHOTREXATE
     Indication: PRODUCT USED FOR UNKNOWN INDICATION
     Route: 065

REACTIONS (9)
  - Internal haemorrhage [Fatal]
  - Multiple organ dysfunction syndrome [Fatal]
  - Coronary artery thrombosis [Fatal]
  - Skin infection [Fatal]
  - Stevens-Johnson syndrome [Fatal]
  - Pneumonia aspiration [Fatal]
  - Toxic epidermal necrolysis [Fatal]
  - Sepsis [Fatal]
  - Cardiopulmonary failure [Fatal]
